FAERS Safety Report 13114299 (Version 1)
Quarter: 2017Q1

REPORT INFORMATION
  Report Type: Report from Study
  Country: US (occurrence: US)
  Receive Date: 20170113
  Receipt Date: 20170113
  Transmission Date: 20170428
  Serious: Yes (Hospitalization)
  Sender: FDA-Public Use
  Company Number: US-ASTRAZENECA-2015SF06606

PATIENT
  Age: 849 Month
  Sex: Female

DRUGS (17)
  1. DALIRESP [Suspect]
     Active Substance: ROFLUMILAST
     Indication: CHRONIC OBSTRUCTIVE PULMONARY DISEASE
     Route: 048
     Dates: start: 201412, end: 201501
  2. DALIRESP [Suspect]
     Active Substance: ROFLUMILAST
     Indication: CHRONIC OBSTRUCTIVE PULMONARY DISEASE
     Route: 048
     Dates: start: 201501
  3. ALEVE [Concomitant]
     Active Substance: NAPROXEN SODIUM
     Indication: MUSCULOSKELETAL PAIN
     Dosage: AS REQUIRED
  4. VITAMIN D [Concomitant]
     Active Substance: CHOLECALCIFEROL
  5. ALBUTEROL. [Concomitant]
     Active Substance: ALBUTEROL
  6. FISH OIL [Concomitant]
     Active Substance: FISH OIL
  7. DRUG FOR THYROID [Concomitant]
     Indication: THYROID DISORDER
  8. UNSPECIFIED STEROIDS [Suspect]
     Active Substance: UNSPECIFIED INGREDIENT
     Route: 065
  9. LORAZEPAM. [Concomitant]
     Active Substance: LORAZEPAM
     Indication: ABNORMAL DREAMS
     Dosage: 0.5MG AS REQUIRED
  10. SYMBICORT [Suspect]
     Active Substance: BUDESONIDE\FORMOTEROL FUMARATE DIHYDRATE
     Indication: CHRONIC OBSTRUCTIVE PULMONARY DISEASE
     Dosage: 160/4.5 UG 2 PUFFS TWO TIMES A DAY
     Route: 055
     Dates: start: 2011
  11. SYMBICORT [Suspect]
     Active Substance: BUDESONIDE\FORMOTEROL FUMARATE DIHYDRATE
     Indication: ASTHMA
     Dosage: 160/4.5 UG 2 PUFFS TWO TIMES A DAY
     Route: 055
     Dates: start: 2011
  12. ZYRTEC [Concomitant]
     Active Substance: CETIRIZINE HYDROCHLORIDE
     Dosage: 5.0MG UNKNOWN
  13. DALIRESP [Suspect]
     Active Substance: ROFLUMILAST
     Indication: CHRONIC OBSTRUCTIVE PULMONARY DISEASE
     Route: 048
     Dates: end: 201610
  14. CENTRUM [Concomitant]
     Active Substance: VITAMINS
  15. TIZANIDINE. [Concomitant]
     Active Substance: TIZANIDINE
     Indication: BACK PAIN
     Dosage: 4.0MG AS REQUIRED
  16. CRANBERRY. [Concomitant]
     Active Substance: CRANBERRY
  17. SPIRIVA [Concomitant]
     Active Substance: TIOTROPIUM BROMIDE MONOHYDRATE

REACTIONS (27)
  - Anxiety [Unknown]
  - Sinus disorder [Unknown]
  - Nausea [Recovered/Resolved]
  - Diarrhoea [Recovered/Resolved]
  - Thyroid disorder [Unknown]
  - Abnormal dreams [Unknown]
  - Adverse drug reaction [Unknown]
  - Weight decreased [Recovered/Resolved]
  - Feeling abnormal [Recovered/Resolved]
  - Product use issue [Unknown]
  - Nasopharyngitis [Unknown]
  - Sleep disorder [Unknown]
  - Abdominal discomfort [Recovered/Resolved]
  - Musculoskeletal pain [Unknown]
  - Off label use [Unknown]
  - Pneumonia [Unknown]
  - Back pain [Recovered/Resolved]
  - Influenza like illness [Recovered/Resolved]
  - Fatigue [Unknown]
  - Respiratory disorder [Unknown]
  - Overweight [Unknown]
  - Adverse event [Unknown]
  - Clostridial infection [Unknown]
  - Insomnia [Recovered/Resolved]
  - Hypersensitivity [Unknown]
  - Dyspnoea [Unknown]
  - Immune system disorder [Unknown]

NARRATIVE: CASE EVENT DATE: 201412
